FAERS Safety Report 6138792-6 (Version None)
Quarter: 2009Q1

REPORT INFORMATION
  Report Type: 
  Country: None (occurrence: None)
  Receive Date: 20090327
  Receipt Date: 20090312
  Transmission Date: 20090719
  Serious: Yes (Hospitalization)
  Sender: FDA-Public Use
  Company Number: PVS1-12-MAR-2009

PATIENT
  Age: 61 Year
  Sex: Female

DRUGS (6)
  1. SEROMYCIN [Suspect]
     Indication: PULMONARY TUBERCULOSIS
     Dosage: 500 MG DAILY (1/D) ORAL
     Route: 048
     Dates: start: 20071015, end: 20080123
  2. ETHIONAMIDE (ETHIONAMIDE) [Concomitant]
  3. OFLOXACIN (OFLOXACIN) [Concomitant]
  4. PYRAZINAMIDE [Concomitant]
  5. ETHAMBUTOL HCL [Concomitant]
  6. KANAMYCIN [Concomitant]

REACTIONS (2)
  - DEAFNESS [None]
  - DIZZINESS [None]
